FAERS Safety Report 4992690-X (Version None)
Quarter: 2006Q2

REPORT INFORMATION
  Report Type: 
  Country: None (occurrence: None)
  Receive Date: 20060504
  Receipt Date: 20060411
  Transmission Date: 20061013
  Serious: Yes (Other)
  Sender: FDA-Public Use
  Company Number: AU-BOEHRINGER INGELHEIM PHARMACEUTICALS, INC.-2006-BP-04062AU

PATIENT

DRUGS (1)
  1. PERSANTIN AMPOULES [Suspect]
     Indication: CARDIAC STRESS TEST
     Route: 042

REACTIONS (1)
  - INJECTION SITE PAIN [None]
